FAERS Safety Report 7015061-3 (Version None)
Quarter: 2010Q3

REPORT INFORMATION
  Report Type: 
  Country: None (occurrence: None)
  Receive Date: 20100927
  Receipt Date: 20100920
  Transmission Date: 20110219
  Serious: Yes (Hospitalization)
  Sender: FDA-Public Use
  Company Number: US-JNJCH-2010021513

PATIENT
  Age: 76 Year
  Sex: Female
  Weight: 83.9 kg

DRUGS (6)
  1. ZYRTEC-D 12 HOUR [Suspect]
     Indication: HYPERSENSITIVITY
     Dosage: TEXT:ONCE DAILY
     Route: 048
     Dates: start: 20000101, end: 20100905
  2. SYNTHROID [Concomitant]
     Indication: THYROID DISORDER
     Route: 065
  3. LASIX [Concomitant]
     Indication: FLUID RETENTION
     Dosage: TEXT:1 X A DAY
     Route: 065
  4. POTASSIUM [Concomitant]
     Indication: FLUID RETENTION
     Dosage: TEXT:1 X A DAY
     Route: 065
  5. VITAMIN B COMPLEX CAP [Concomitant]
     Indication: PROPHYLAXIS
     Dosage: TEXT:1 X A DAY
     Route: 065
  6. VITAMIN D [Concomitant]
     Indication: PROPHYLAXIS
     Dosage: TEXT:1 X A DAY
     Route: 065

REACTIONS (1)
  - ATRIAL FIBRILLATION [None]
